FAERS Safety Report 23871120 (Version 1)
Quarter: 2024Q2

REPORT INFORMATION
  Report Type: Spontaneous
  Country: RO (occurrence: RO)
  Receive Date: 20240518
  Receipt Date: 20240518
  Transmission Date: 20240715
  Serious: Yes (Death, Life-Threatening, Other)
  Sender: FDA-Public Use
  Company Number: RO-Accord-424808

PATIENT
  Age: 63 Year
  Sex: Female

DRUGS (12)
  1. LETROZOLE [Suspect]
     Active Substance: LETROZOLE
     Indication: Metastasis
     Dates: start: 201808, end: 201905
  2. DOCETAXEL [Suspect]
     Active Substance: DOCETAXEL\DOCETAXEL ANHYDROUS
     Indication: Metastasis
     Dosage: 75 MG/M2 Q3W
     Dates: start: 201802, end: 201808
  3. FULVESTRANT [Suspect]
     Active Substance: FULVESTRANT
     Indication: Metastasis
  4. PACLITAXEL [Suspect]
     Active Substance: PACLITAXEL
     Indication: Breast cancer
     Dosage: 90 MG/M2 DAY 1,8,15, Q4W
  5. PEGFILGRASTIM [Suspect]
     Active Substance: PEGFILGRASTIM
     Indication: Prophylaxis
  6. ZOLEDRONIC ACID [Suspect]
     Active Substance: ZOLEDRONIC ACID
     Indication: Metastasis
     Dosage: 4 MG Q3-4W
  7. ALPELISIB [Suspect]
     Active Substance: ALPELISIB
     Indication: Metastasis
  8. PALBOCICLIB [Suspect]
     Active Substance: PALBOCICLIB
     Indication: Metastasis
     Dosage: 21 DAYS IN A 28 DAY CYCLE
     Dates: start: 201808, end: 201905
  9. LETROZOLE [Suspect]
     Active Substance: LETROZOLE
     Indication: Metastasis
     Dates: start: 202206
  10. PALBOCICLIB [Suspect]
     Active Substance: PALBOCICLIB
     Indication: Metastasis
     Dates: start: 202206
  11. PALBOCICLIB [Suspect]
     Active Substance: PALBOCICLIB
     Indication: Metastasis
     Dosage: 21 DAYS IN A 28 DAY CYCLE
     Dates: start: 201808, end: 202203
  12. LETROZOLE [Suspect]
     Active Substance: LETROZOLE
     Indication: Metastasis
     Dates: start: 201808, end: 202203

REACTIONS (5)
  - Febrile neutropenia [Unknown]
  - Neuropathy peripheral [Unknown]
  - Death [Fatal]
  - Disease progression [Unknown]
  - Thrombocytopenia [Recovered/Resolved]

NARRATIVE: CASE EVENT DATE: 20230601
